FAERS Safety Report 14880164 (Version 5)
Quarter: 2019Q2

REPORT INFORMATION
  Report Type: Spontaneous
  Country: US (occurrence: US)
  Receive Date: 20180511
  Receipt Date: 20190507
  Transmission Date: 20190711
  Serious: Yes (Hospitalization, Other)
  Sender: FDA-Public Use
  Company Number: US-SA-2018SA126905

PATIENT
  Age: 46 Year
  Sex: Male

DRUGS (2)
  1. SOLU-MEDROL [Concomitant]
     Active Substance: METHYLPREDNISOLONE SODIUM SUCCINATE
     Route: 041
  2. LEMTRADA [Suspect]
     Active Substance: ALEMTUZUMAB
     Dosage: UNK UNK,UNK
     Route: 041
     Dates: start: 201706, end: 201706

REACTIONS (28)
  - Ataxia [Unknown]
  - Optic nerve disorder [Unknown]
  - Demyelination [Unknown]
  - Meningitis noninfective [Unknown]
  - Dementia [Unknown]
  - Glaucoma [Unknown]
  - Encephalitis [Unknown]
  - Mental disorder [Unknown]
  - Cognitive disorder [Unknown]
  - Hospice care [Unknown]
  - General physical health deterioration [Unknown]
  - Hypoglycaemia [Unknown]
  - Lens disorder [Unknown]
  - Retinal disorder [Unknown]
  - Delirium [Unknown]
  - Visual impairment [Unknown]
  - Gastrointestinal disorder [Unknown]
  - Optic neuritis [Unknown]
  - Eye infection [Unknown]
  - Blindness [Not Recovered/Not Resolved]
  - Multiple sclerosis relapse [Unknown]
  - Condition aggravated [Unknown]
  - Gastrointestinal inflammation [Unknown]
  - Nuclear magnetic resonance imaging abnormal [Unknown]
  - Progressive multifocal leukoencephalopathy [Not Recovered/Not Resolved]
  - Guillain-Barre syndrome [Unknown]
  - Dysphagia [Not Recovered/Not Resolved]
  - Headache [Unknown]
